FAERS Safety Report 13570950 (Version 1)
Quarter: 2017Q2

REPORT INFORMATION
  Report Type: Spontaneous
  Country: US (occurrence: US)
  Receive Date: 20170523
  Receipt Date: 20170523
  Transmission Date: 20170830
  Serious: No
  Sender: FDA-Public Use
  Company Number: US-TEVA-735975ACC

PATIENT
  Sex: Female

DRUGS (1)
  1. ZOVIA [Suspect]
     Active Substance: ETHINYL ESTRADIOL\ETHYNODIOL DIACETATE
     Route: 065

REACTIONS (1)
  - Allergy to chemicals [Unknown]
